FAERS Safety Report 7797636 (Version 11)
Quarter: 2014Q4

REPORT INFORMATION
  Report Type: Report from Study
  Country: US (occurrence: US)
  Receive Date: 20110203
  Receipt Date: 20141202
  Transmission Date: 20150529
  Serious: Yes (Hospitalization, Other)
  Sender: FDA-Public Use
  Company Number: US-ACTELION-A-NJ2011-44253

PATIENT
  Age: 62 Year
  Sex: Female

DRUGS (30)
  1. SYMBICORT [Concomitant]
     Active Substance: BUDESONIDE\FORMOTEROL FUMARATE DIHYDRATE
     Dosage: 160 MCG, BID
     Dates: start: 2008
  2. VITAMIN D [Concomitant]
     Active Substance: CHOLECALCIFEROL
     Dosage: 1000 UNK, UNK
     Dates: start: 2008
  3. DILTIAZEM [Concomitant]
     Active Substance: DILTIAZEM
     Dosage: 180 MG, QD
     Dates: start: 2008
  4. LOSARTAN [Concomitant]
     Active Substance: LOSARTAN
     Dosage: 100 MG, UNK
     Dates: start: 2008
  5. MULTIVITAMIN [Concomitant]
     Active Substance: VITAMINS
     Dosage: UNK
     Dates: start: 2008
  6. RESTASIS [Concomitant]
     Active Substance: CYCLOSPORINE
     Dosage: 1 UNK, BID
     Dates: start: 2012
  7. FISH OIL [Concomitant]
     Active Substance: FISH OIL
     Dosage: 100 MG, QD
     Dates: start: 2008
  8. FLEXERIL [Concomitant]
     Active Substance: CYCLOBENZAPRINE HYDROCHLORIDE
     Dosage: 10 MG, PRN
  9. TRACLEER [Suspect]
     Active Substance: BOSENTAN\BOSENTAN MONOHYDRATE
     Dosage: UNK
     Route: 048
     Dates: start: 2008, end: 200808
  10. REVATIO [Concomitant]
     Active Substance: SILDENAFIL CITRATE
     Dosage: 40 MG, TID
     Dates: start: 2008
  11. ALBUTEROL. [Concomitant]
     Active Substance: ALBUTEROL
     Dosage: UNK, PRN
     Dates: start: 2008
  12. SYNTHROID [Concomitant]
     Active Substance: LEVOTHYROXINE SODIUM
     Dosage: .175 NG/KG, PER MIN
     Dates: start: 2008
  13. SINGULAIR [Concomitant]
     Active Substance: MONTELUKAST SODIUM
     Dosage: 10 MG, BID
     Dates: start: 2008
  14. TRAMADOL [Concomitant]
     Active Substance: TRAMADOL
     Dosage: 100 MG, PRN
     Dates: start: 2008
  15. MYRBETRIQ [Concomitant]
     Active Substance: MIRABEGRON
     Dosage: 50 MG, QD
     Dates: start: 2012
  16. TYVASO [Concomitant]
     Active Substance: TREPROSTINIL
  17. PROVENTIL [Concomitant]
     Active Substance: ALBUTEROL
     Dosage: 4 PUFF, QID
     Dates: start: 2008
  18. CLONIDINE. [Concomitant]
     Active Substance: CLONIDINE
     Dosage: .1 MG, BID
     Dates: start: 2008
  19. METFORMIN [Concomitant]
     Active Substance: METFORMIN HYDROCHLORIDE
     Dosage: 750 MG, BID
     Dates: start: 2008
  20. SPIRIVA [Concomitant]
     Active Substance: TIOTROPIUM BROMIDE MONOHYDRATE
     Dosage: 18 MCG, QD
     Dates: start: 2008
  21. OXYCODONE [Concomitant]
     Active Substance: OXYCODONE
     Dosage: 10 MG, PRN
     Dates: start: 2008
  22. OXYBUTYNIN [Concomitant]
     Active Substance: OXYBUTYNIN
     Dosage: 5 MG, QD
     Dates: start: 2013
  23. TRACLEER [Suspect]
     Active Substance: BOSENTAN\BOSENTAN MONOHYDRATE
     Indication: PULMONARY ARTERIAL HYPERTENSION
     Dosage: 125 MG, UNK
     Route: 048
     Dates: start: 20080519
  24. VICTOZA [Concomitant]
     Active Substance: LIRAGLUTIDE
     Dosage: 18 MG, QD
     Dates: start: 2008
  25. CRESTOR [Concomitant]
     Active Substance: ROSUVASTATIN CALCIUM
     Dosage: 20 MG, QD
     Dates: start: 2008
  26. POTASSIUM [Concomitant]
     Active Substance: POTASSIUM
     Dosage: 20 MEQ, QID
     Dates: start: 2008
  27. TRANSENE [Concomitant]
     Dosage: 7.5 MG, TID
     Dates: start: 2008
  28. CYMBALTA [Concomitant]
     Active Substance: DULOXETINE HYDROCHLORIDE
     Dosage: 90 MG, QD
     Dates: start: 2008
  29. TORSEMIDE. [Concomitant]
     Active Substance: TORSEMIDE
     Dosage: 20 MG, BID
     Dates: start: 2008
  30. TRANXENE T-TAB [Concomitant]
     Active Substance: CLORAZEPATE DIPOTASSIUM
     Dosage: 7.5 MG, PRN

REACTIONS (24)
  - Asthma [Unknown]
  - Muscle disorder [Unknown]
  - Confusional state [Unknown]
  - Musculoskeletal pain [Not Recovered/Not Resolved]
  - Hypoxia [Recovering/Resolving]
  - Condition aggravated [Recovered/Resolved]
  - Costochondritis [Not Recovered/Not Resolved]
  - Tenderness [Unknown]
  - Headache [Not Recovered/Not Resolved]
  - Ovarian mass [Not Recovered/Not Resolved]
  - Pneumonia [Recovered/Resolved]
  - Limb discomfort [Unknown]
  - Critical illness polyneuropathy [Unknown]
  - Amnesia [Not Recovered/Not Resolved]
  - Fall [Recovered/Resolved]
  - Wheezing [Unknown]
  - Concussion [Recovered/Resolved]
  - Gait disturbance [Unknown]
  - Dysgraphia [Unknown]
  - Head injury [Recovered/Resolved]
  - Vision blurred [Not Recovered/Not Resolved]
  - Dyspnoea [Unknown]
  - Peripheral swelling [Unknown]
  - Diplopia [Unknown]

NARRATIVE: CASE EVENT DATE: 200902
